FAERS Safety Report 8567327-3 (Version None)
Quarter: 2012Q3

REPORT INFORMATION
  Report Type: 
  Country: None (occurrence: None)
  Receive Date: 20120803
  Receipt Date: 20120801
  Transmission Date: 20120928
  Serious: Yes (Other)
  Sender: FDA-Public Use
  Company Number: PHHY2012FR066697

PATIENT
  Sex: Female

DRUGS (3)
  1. ZOMETA [Suspect]
     Dosage: 4 MG/100ML
     Route: 042
     Dates: start: 20120607
  2. ZOMETA [Suspect]
     Dosage: 4 MG, / 100ML
     Route: 042
     Dates: start: 20120701
  3. ZOMETA [Suspect]
     Dosage: UNK UKN, UNK
     Dates: start: 20101001

REACTIONS (6)
  - ERYTHEMA [None]
  - ARTHRALGIA [None]
  - INFLUENZA LIKE ILLNESS [None]
  - BONE PAIN [None]
  - GROIN PAIN [None]
  - GAIT DISTURBANCE [None]
